FAERS Safety Report 24618097 (Version 1)
Quarter: 2024Q4

REPORT INFORMATION
  Report Type: Spontaneous
  Country: CA (occurrence: CA)
  Receive Date: 20241114
  Receipt Date: 20241114
  Transmission Date: 20250115
  Serious: Yes (Disabling)
  Sender: CHEPLAPHARM
  Company Number: CA-CHEPLA-2024014236

PATIENT
  Age: 94 Year
  Sex: Female
  Weight: 74.839 kg

DRUGS (3)
  1. HYDROXYUREA [Suspect]
     Active Substance: HYDROXYUREA
     Indication: Janus kinase 2 mutation
     Dosage: 500 MILLIGRAM 2 EVERY 1 DAYS?DAILY DOSE: 1000 MILLIGRAM
     Route: 048
  2. HYDROXYUREA [Suspect]
     Active Substance: HYDROXYUREA
     Indication: Essential thrombocythaemia
     Dosage: 500 MILLIGRAM 2 EVERY 1 DAYS?DAILY DOSE: 1000 MILLIGRAM
     Route: 048
  3. AMITRIPTYLINE [Concomitant]
     Active Substance: AMITRIPTYLINE

REACTIONS (2)
  - Hallucination [Recovering/Resolving]
  - Platelet count abnormal [Recovering/Resolving]
